APPROVED DRUG PRODUCT: OLUX E
Active Ingredient: CLOBETASOL PROPIONATE
Strength: 0.05% **Federal Register determination that product was not discontinued or withdrawn for safety or effectiveness reasons**
Dosage Form/Route: AEROSOL, FOAM;TOPICAL
Application: N022013 | Product #001
Applicant: PHARMOBEDIENT CONSULTING LLC
Approved: Jan 12, 2007 | RLD: Yes | RS: No | Type: DISCN

PATENTS:
Patent 8460641 | Expires: Nov 5, 2028